FAERS Safety Report 8965365 (Version 1)
Quarter: 2012Q4

REPORT INFORMATION
  Report Type: 
  Country: GB (occurrence: GB)
  Receive Date: 20121213
  Receipt Date: 20121213
  Transmission Date: 20130627
  Serious: Yes (Other)
  Sender: FDA-Public Use
  Company Number: GB-ELI_LILLY_AND_COMPANY-GB201212000226

PATIENT
  Age: 16 Year
  Sex: Female
  Weight: 79 kg

DRUGS (1)
  1. FLUOXETINE [Suspect]
     Indication: PERSONALITY DISORDER
     Dosage: 20 mg, unknown
     Route: 048
     Dates: start: 20121106, end: 20121115

REACTIONS (9)
  - Unresponsive to stimuli [Unknown]
  - Abnormal behaviour [Recovered/Resolved]
  - Slow speech [Recovered/Resolved]
  - Hallucination, visual [Recovered/Resolved]
  - Nystagmus [Recovered/Resolved]
  - Movement disorder [Unknown]
  - Tardive dyskinesia [Recovered/Resolved]
  - Headache [Unknown]
  - Off label use [Recovered/Resolved]
